FAERS Safety Report 8398662 (Version 9)
Quarter: 2013Q1

REPORT INFORMATION
  Report Type: Spontaneous
  Country: US (occurrence: US)
  Receive Date: 20120209
  Receipt Date: 20130215
  Transmission Date: 20140127
  Serious: Yes (Hospitalization, Other)
  Sender: FDA-Public Use
  Company Number: US-009507513-1202USA00897

PATIENT
  Sex: Female
  Weight: 68.39 kg

DRUGS (13)
  1. FOSAMAX [Suspect]
     Indication: OSTEOPOROSIS
     Dosage: 70 MG, UNK
     Route: 048
     Dates: start: 200311, end: 200712
  2. FOSAMAX [Suspect]
     Route: 048
     Dates: end: 20101026
  3. FOSAMAX [Suspect]
     Indication: OSTEOPOROSIS
     Dosage: 70 MG, UNK
     Route: 048
     Dates: start: 200902, end: 200909
  4. FOSAMAX [Suspect]
     Route: 048
     Dates: start: 20091020, end: 20101002
  5. CALCIUM (UNSPECIFIED) [Concomitant]
     Dosage: 600-1000
  6. MK-9278 [Concomitant]
  7. VITAMIN D (UNSPECIFIED) [Concomitant]
  8. XANAX [Concomitant]
     Dosage: 0.5 MG, QID
  9. EXELON (RIVASTIGMINE) [Concomitant]
     Dosage: 1.5 MG, BID
     Route: 048
  10. EFFEXOR [Concomitant]
     Dosage: 37.5-75
     Route: 048
  11. CYMBALTA [Concomitant]
     Dosage: 30 MG, BID
  12. ALENDRONATE SODIUM [Suspect]
     Dosage: 70 MG, UNK
     Route: 048
     Dates: start: 20090202, end: 200910
  13. ALENDRONATE SODIUM [Suspect]
     Dosage: 70 MG, UNK
     Route: 048
     Dates: start: 20091020, end: 20101002

REACTIONS (57)
  - Femur fracture [Unknown]
  - Hip fracture [Unknown]
  - Femur fracture [Unknown]
  - Hip arthroplasty [Unknown]
  - Dependence [Unknown]
  - Suicidal ideation [Unknown]
  - Uterine disorder [Unknown]
  - Urinary tract infection bacterial [Unknown]
  - Fall [Unknown]
  - Dizziness [Unknown]
  - Diarrhoea [Not Recovered/Not Resolved]
  - Bone density decreased [Unknown]
  - Fall [Unknown]
  - Depression [Unknown]
  - Anxiety [Unknown]
  - Dehydration [Unknown]
  - Hypothyroidism [Unknown]
  - Sjogren^s syndrome [Unknown]
  - Dementia Alzheimer^s type [Unknown]
  - Arthritis [Unknown]
  - Anxiety disorder [Not Recovered/Not Resolved]
  - Fibromyalgia [Unknown]
  - Osteoarthritis [Unknown]
  - Appendix disorder [Unknown]
  - Tonsillar disorder [Unknown]
  - Blepharitis [Unknown]
  - Urinary incontinence [Not Recovered/Not Resolved]
  - Rosacea [Unknown]
  - Adenoidal disorder [Unknown]
  - Cataract [Unknown]
  - Coronary artery disease [Unknown]
  - Arteriosclerosis [Unknown]
  - Gastrointestinal disorder [Unknown]
  - Anaemia postoperative [Unknown]
  - Hand fracture [Unknown]
  - Haemoglobin decreased [Unknown]
  - Hyperglycaemia [Unknown]
  - Type 2 diabetes mellitus [Unknown]
  - Limb asymmetry [Unknown]
  - Arthropathy [Unknown]
  - Intervertebral disc protrusion [Unknown]
  - Refusal of treatment by patient [Unknown]
  - Insomnia [Unknown]
  - Vitamin D deficiency [Unknown]
  - Hypovolaemia [Unknown]
  - Vertebral foraminal stenosis [Unknown]
  - Radiculitis lumbosacral [Unknown]
  - Gait disturbance [Unknown]
  - Constipation [Not Recovered/Not Resolved]
  - Constipation [Unknown]
  - Vomiting [Unknown]
  - Mouth ulceration [Recovering/Resolving]
  - Arthralgia [Unknown]
  - Gastrooesophageal reflux disease [Not Recovered/Not Resolved]
  - Drug ineffective [Unknown]
  - Drug hypersensitivity [Unknown]
  - Nausea [Unknown]
